FAERS Safety Report 8229104-2 (Version None)
Quarter: 2012Q1

REPORT INFORMATION
  Report Type: 
  Country: None (occurrence: None)
  Receive Date: 20120322
  Receipt Date: 20120313
  Transmission Date: 20120608
  Serious: Yes (Hospitalization)
  Sender: FDA-Public Use
  Company Number: US-ASTRAZENECA-2012SE17257

PATIENT
  Age: 82 Year
  Sex: Female

DRUGS (4)
  1. NEURONTIN [Concomitant]
  2. NEXIUM [Suspect]
     Route: 048
     Dates: start: 20020101, end: 20120201
  3. PERCOCET [Concomitant]
  4. LIPITOR [Suspect]
     Route: 065

REACTIONS (8)
  - DIARRHOEA [None]
  - GASTROOESOPHAGEAL REFLUX DISEASE [None]
  - DRUG DOSE OMISSION [None]
  - CHOKING [None]
  - DEHYDRATION [None]
  - WEIGHT DECREASED [None]
  - VOMITING [None]
  - FOOD POISONING [None]
